FAERS Safety Report 21490526 (Version 1)
Quarter: 2022Q4

REPORT INFORMATION
  Report Type: Spontaneous
  Country: US (occurrence: US)
  Receive Date: 20221021
  Receipt Date: 20221021
  Transmission Date: 20230113
  Serious: No
  Sender: FDA-Public Use
  Company Number: US-CELLTRION INC.-2022US013214

PATIENT

DRUGS (1)
  1. INFLECTRA [Suspect]
     Active Substance: INFLIXIMAB-DYYB
     Indication: Product used for unknown indication
     Dosage: X INFLECTRA X 100MG/20ML DIRECTIONS: 5MG/KG, CYCLIC (5MG/KG IV FREQUENCY: 0,2,6,8 WEEKS QUANTITY: (B
     Route: 042

REACTIONS (1)
  - Unevaluable event [Unknown]
